FAERS Safety Report 6938663-9 (Version None)
Quarter: 2010Q3

REPORT INFORMATION
  Report Type: 
  Country: None (occurrence: None)
  Receive Date: 20100824
  Receipt Date: 20100812
  Transmission Date: 20110219
  Serious: Yes (Disabling)
  Sender: FDA-Public Use
  Company Number: PT-GENZYME-FABR-1001520

PATIENT

DRUGS (4)
  1. FABRAZYME [Suspect]
     Indication: FABRY'S DISEASE
     Dosage: 1 MG/KG, UNK
     Route: 042
     Dates: start: 20050801, end: 20090101
  2. FABRAZYME [Suspect]
     Dosage: 0.5 MG/KG, Q2W
     Route: 042
     Dates: start: 20090101
  3. ACETAMINOPHEN [Concomitant]
     Indication: PAIN
     Dosage: UNK
     Dates: start: 20010101
  4. ACETAMINOPHEN [Concomitant]
     Indication: PYREXIA

REACTIONS (3)
  - DEPRESSION [None]
  - MUSCULOSKELETAL PAIN [None]
  - PARAESTHESIA [None]
